FAERS Safety Report 25903645 (Version 1)
Quarter: 2025Q4

REPORT INFORMATION
  Report Type: Spontaneous
  Country: EU (occurrence: EU)
  Receive Date: 20251010
  Receipt Date: 20251010
  Transmission Date: 20260117
  Serious: Yes (Other)
  Sender: TEVA
  Company Number: None

PATIENT
  Age: 63 Year
  Sex: Female

DRUGS (1)
  1. METHOTREXATE [Suspect]
     Active Substance: METHOTREXATE
     Indication: Renal impairment
     Route: 065
     Dates: start: 20241025, end: 20250923

REACTIONS (2)
  - Acute kidney injury [Unknown]
  - Leukopenia [Unknown]
